FAERS Safety Report 6772774-6 (Version None)
Quarter: 2010Q2

REPORT INFORMATION
  Report Type: 
  Country: None (occurrence: None)
  Receive Date: 20100616
  Receipt Date: 20100610
  Transmission Date: 20101027
  Serious: Yes (Other)
  Sender: FDA-Public Use
  Company Number: GB-CEPHALON-2010003164

PATIENT
  Age: 38 Year
  Sex: Male
  Weight: 69 kg

DRUGS (2)
  1. PROVIGIL [Suspect]
     Indication: NARCOLEPSY
     Route: 048
     Dates: start: 20080116, end: 20100127
  2. SODIUM OXYBATE [Concomitant]
     Indication: NARCOLEPSY
     Dates: start: 20070814, end: 20100127

REACTIONS (4)
  - ORAL MUCOSAL EXFOLIATION [None]
  - PENILE ULCERATION [None]
  - RASH [None]
  - TOOTH EROSION [None]
